FAERS Safety Report 21699929 (Version 5)
Quarter: 2024Q1

REPORT INFORMATION
  Report Type: Spontaneous
  Country: US (occurrence: US)
  Receive Date: 20221208
  Receipt Date: 20240320
  Transmission Date: 20240410
  Serious: Yes (Other)
  Sender: FDA-Public Use
  Company Number: US-CELLTRION INC.-2022US020571

PATIENT

DRUGS (6)
  1. INFLECTRA [Suspect]
     Active Substance: INFLIXIMAB-DYYB
     Indication: Colitis ulcerative
     Dosage: EVERY 8 WEEKS
     Route: 042
     Dates: start: 202106, end: 20221115
  2. INFLECTRA [Suspect]
     Active Substance: INFLIXIMAB-DYYB
     Dosage: 100 MG, EVERY 8 WEEKS/INFLECTRA HE WAS STARTED AT 100MG, BUT HIS SYMPTOMS WERE APPEARING SO HE WAS M
     Route: 042
     Dates: start: 202106
  3. INFLECTRA [Suspect]
     Active Substance: INFLIXIMAB-DYYB
     Dosage: 1000 MG ONCE EVERY 6 WEEKS (1X/6WKS)
     Route: 042
     Dates: start: 202107, end: 202210
  4. INFLECTRA [Suspect]
     Active Substance: INFLIXIMAB-DYYB
     Dosage: 300 MG, EVERY 8 WEEKS
     Route: 042
  5. INFLECTRA [Suspect]
     Active Substance: INFLIXIMAB-DYYB
     Dosage: 600 MG, EVERY 8 WEEKS
     Route: 042
  6. INFLECTRA [Suspect]
     Active Substance: INFLIXIMAB-DYYB
     Dosage: 1000 MG, EVERY 8 WEEKS
     Route: 042
     Dates: start: 20221115

REACTIONS (11)
  - Haematochezia [Not Recovered/Not Resolved]
  - Colitis ulcerative [Recovered/Resolved]
  - Condition aggravated [Not Recovered/Not Resolved]
  - Abdominal discomfort [Not Recovered/Not Resolved]
  - Abdominal pain [Not Recovered/Not Resolved]
  - Drug specific antibody present [Unknown]
  - Underdose [Unknown]
  - Overdose [Unknown]
  - Therapeutic response decreased [Unknown]
  - Drug ineffective [Unknown]
  - Intentional product use issue [Unknown]

NARRATIVE: CASE EVENT DATE: 20210101
